FAERS Safety Report 19507468 (Version 1)
Quarter: 2021Q3

REPORT INFORMATION
  Report Type: Spontaneous
  Country: DE (occurrence: DE)
  Receive Date: 20210708
  Receipt Date: 20210708
  Transmission Date: 20211014
  Serious: Yes (Life-Threatening, Hospitalization)
  Sender: FDA-Public Use
  Company Number: DE-TEVA-2021-DE-1928421

PATIENT
  Age: 84 Year
  Sex: Female

DRUGS (12)
  1. KALIUM [Concomitant]
     Active Substance: POTASSIUM CHLORIDE
     Dosage: ACCORDING TO POTASSIUM LEVEL
  2. NATRIUMPICOSULFAT [Concomitant]
     Active Substance: SODIUM PICOSULFATE
     Dosage: 0?0?12?0, DROPS, 12 GTT
  3. BUDESONID/FORMOTEROL [Concomitant]
     Active Substance: BUDESONIDE\FORMOTEROL
     Dosage: 4 DOSAGE FORMS DAILY; 160 | 4.5 MCG, 2?0?2?0, METERED DOSE INHALER
     Route: 055
  4. MORPHIN [Suspect]
     Active Substance: MORPHINE
     Dosage: 4 GTT IF NECESSARY UP TO 4 XGL DROPS
     Route: 065
  5. MST (MORPHINE SULFATE) [Suspect]
     Active Substance: MORPHINE SULFATE
     Dosage: 20 MILLIGRAM DAILY;  1?0?1?0
     Route: 065
  6. TIOTROPIUMBROMID [Concomitant]
     Dosage: 2 DOSAGE FORMS DAILY; 2.5 MCG, 2?0?0?0, METERED DOSE INHALER
     Route: 055
  7. APIXABAN [Concomitant]
     Active Substance: APIXABAN
     Dosage: 5 MILLIGRAM DAILY; 1?0?1?0
  8. METOPROLOL. [Concomitant]
     Active Substance: METOPROLOL
     Dosage: 95 MILLIGRAM DAILY; 47.5 MG, 1?0?1?0
  9. METAMIZOL [Concomitant]
     Active Substance: METAMIZOLE SODIUM
     Dosage: IF NECESSARY UP TO 3X, DROPS
  10. MORPHIN [Suspect]
     Active Substance: MORPHINE
     Dosage: 5 MG, ONCE ON 08122020
     Route: 042
     Dates: start: 20201208, end: 20201208
  11. TORASEMID [Suspect]
     Active Substance: TORSEMIDE
     Dosage: 10 MG, 1?1?0?0
     Route: 065
  12. PANTOPRAZOL [Concomitant]
     Active Substance: PANTOPRAZOLE SODIUM
     Dosage: 40 MILLIGRAM DAILY; 1?0?0?0

REACTIONS (2)
  - Product prescribing error [Unknown]
  - Dyspnoea [Unknown]

NARRATIVE: CASE EVENT DATE: 20201203
